FAERS Safety Report 6667624-2 (Version None)
Quarter: 2010Q1

REPORT INFORMATION
  Report Type: 
  Country: None (occurrence: None)
  Receive Date: 20100331
  Receipt Date: 20100317
  Transmission Date: 20100710
  Serious: Yes (Hospitalization)
  Sender: FDA-Public Use
  Company Number: FKO201000072

PATIENT
  Age: 63 Year
  Sex: Female

DRUGS (2)
  1. CAPECITABINE [Suspect]
     Indication: COLON CANCER METASTATIC
     Dosage: 80.9524 MG/M2  (850 MG/M2, ON DAYS 1-14)
     Route: 048
  2. OXALIPLATIN [Suspect]
     Indication: COLON CANCER METASTATIC
     Route: 048

REACTIONS (17)
  - ASTHENIA [None]
  - BLOOD URIC ACID INCREASED [None]
  - DEVICE RELATED SEPSIS [None]
  - FANCONI SYNDROME [None]
  - GLYCOSURIA [None]
  - HAEMOGLOBIN DECREASED [None]
  - HYPERPHOSPHATURIA [None]
  - HYPERURICOSURIA [None]
  - HYPOKALAEMIA [None]
  - ILEUS PARALYTIC [None]
  - MALIGNANT NEOPLASM PROGRESSION [None]
  - METABOLIC ACIDOSIS [None]
  - MUSCULAR WEAKNESS [None]
  - PARAESTHESIA [None]
  - PROTEINURIA [None]
  - RENAL TUBULAR ACIDOSIS [None]
  - WHITE BLOOD CELL COUNT DECREASED [None]
